FAERS Safety Report 7440252-7 (Version None)
Quarter: 2011Q2

REPORT INFORMATION
  Report Type: 
  Country: None (occurrence: None)
  Receive Date: 20110427
  Receipt Date: 20100726
  Transmission Date: 20111010
  Serious: Yes (Other)
  Sender: FDA-Public Use
  Company Number: US-PFIZER INC-2010093807

PATIENT
  Sex: Female

DRUGS (3)
  1. DEMEROL [Suspect]
  2. PENICILLIN G POTASSIUM [Suspect]
  3. ZITHROMAX [Suspect]

REACTIONS (2)
  - PHARYNGEAL OEDEMA [None]
  - DYSPNOEA [None]
